FAERS Safety Report 18495107 (Version 1)
Quarter: 2020Q4

REPORT INFORMATION
  Report Type: Spontaneous
  Country: US (occurrence: US)
  Receive Date: 20201111
  Receipt Date: 20201111
  Transmission Date: 20210114
  Serious: Yes (Hospitalization)
  Sender: FDA-Public Use
  Company Number: None

PATIENT
  Age: 54 Year
  Sex: Female

DRUGS (1)
  1. CAPECITABINE. [Suspect]
     Active Substance: CAPECITABINE
     Indication: NEOPLASM MALIGNANT
     Dosage: ?          OTHER FREQUENCY:BID FOR 14 DAYS;?
     Route: 048
     Dates: start: 20200707

REACTIONS (1)
  - Gastrointestinal viral infection [None]

NARRATIVE: CASE EVENT DATE: 20201110
